FAERS Safety Report 9226135 (Version 1)
Quarter: 2013Q2

REPORT INFORMATION
  Report Type: Spontaneous
  Country: BR (occurrence: BR)
  Receive Date: 20130411
  Receipt Date: 20130411
  Transmission Date: 20140414
  Serious: Yes (Other)
  Sender: FDA-Public Use
  Company Number: BR-009507513-2012SP018708

PATIENT
  Age: 30 Year
  Sex: Female
  Weight: 48 kg

DRUGS (1)
  1. NUVARING [Suspect]
     Indication: CONTRACEPTION
     Dosage: UNK UNK, UNKNOWN
     Route: 067
     Dates: start: 201102

REACTIONS (8)
  - Abortion threatened [Unknown]
  - Caesarean section [Unknown]
  - Unintended pregnancy [Recovered/Resolved]
  - Hypomenorrhoea [Unknown]
  - Pain [Unknown]
  - Dysmenorrhoea [Unknown]
  - Nausea [Unknown]
  - Incorrect storage of drug [Unknown]
